FAERS Safety Report 17250550 (Version 2)
Quarter: 2020Q4

REPORT INFORMATION
  Report Type: Other
  Country: US (occurrence: US)
  Receive Date: 20200109
  Receipt Date: 20201029
  Transmission Date: 20210113
  Serious: Yes (Other)
  Sender: FDA-Public Use
  Company Number: US-ROCHE-2376798

PATIENT
  Age: 66 Year
  Sex: Female
  Weight: 108.51 kg

DRUGS (26)
  1. OXYBUTYNIN CHLORIDE. [Concomitant]
     Active Substance: OXYBUTYNIN CHLORIDE
     Route: 048
     Dates: start: 20200826
  2. VALIUM [Suspect]
     Active Substance: DIAZEPAM
     Indication: DIZZINESS
     Route: 048
     Dates: start: 20170808
  3. TEMAZEPAM. [Concomitant]
     Active Substance: TEMAZEPAM
     Dosage: TAKE 1 CAPSULE AT BEDTIME AS NEEDED FOR SLEEP
     Route: 048
     Dates: start: 20151125
  4. LISINOPRIL. [Concomitant]
     Active Substance: LISINOPRIL
     Indication: HYPERTENSION
     Route: 048
  5. DULOXETINE. [Concomitant]
     Active Substance: DULOXETINE
     Route: 048
     Dates: start: 20140726
  6. NAPROXEN. [Concomitant]
     Active Substance: NAPROXEN
     Route: 048
     Dates: start: 20151202
  7. OCREVUS [Suspect]
     Active Substance: OCRELIZUMAB
     Route: 042
     Dates: start: 2018
  8. OCREVUS [Suspect]
     Active Substance: OCRELIZUMAB
     Route: 042
  9. CARBAMAZEPINE. [Concomitant]
     Active Substance: CARBAMAZEPINE
     Route: 048
     Dates: start: 20140726
  10. METHYLPHENIDATE. [Concomitant]
     Active Substance: METHYLPHENIDATE
     Route: 048
     Dates: start: 20160407
  11. OCREVUS [Suspect]
     Active Substance: OCRELIZUMAB
     Route: 042
  12. LISINOPRIL. [Concomitant]
     Active Substance: LISINOPRIL
     Route: 048
     Dates: start: 20140720
  13. DULOXETINE. [Concomitant]
     Active Substance: DULOXETINE
     Indication: DEPRESSION
     Route: 065
  14. OCREVUS [Suspect]
     Active Substance: OCRELIZUMAB
     Route: 042
     Dates: start: 20170830
  15. TAMIFLU [Suspect]
     Active Substance: OSELTAMIVIR PHOSPHATE
     Indication: PRODUCT USED FOR UNKNOWN INDICATION
     Route: 048
     Dates: start: 20190223
  16. PRAVASTATIN. [Concomitant]
     Active Substance: PRAVASTATIN
     Route: 048
     Dates: start: 20180124
  17. CETIRIZINE [Concomitant]
     Active Substance: CETIRIZINE HYDROCHLORIDE
     Route: 048
     Dates: start: 20140726
  18. OMEPRAZOLE. [Concomitant]
     Active Substance: OMEPRAZOLE
     Route: 048
     Dates: start: 20140726
  19. OCREVUS [Suspect]
     Active Substance: OCRELIZUMAB
     Indication: RELAPSING MULTIPLE SCLEROSIS
     Dosage: YES
     Route: 042
     Dates: start: 20170822
  20. PRAVASTATIN. [Concomitant]
     Active Substance: PRAVASTATIN
     Dosage: DOSE UNKNOWN
     Route: 048
  21. KEPPRA [Concomitant]
     Active Substance: LEVETIRACETAM
     Route: 048
     Dates: start: 20140726
  22. CIPROFLOXACIN. [Concomitant]
     Active Substance: CIPROFLOXACIN
     Route: 048
     Dates: start: 20200811
  23. FLUCONAZOLE. [Concomitant]
     Active Substance: FLUCONAZOLE
     Route: 048
     Dates: start: 20190605
  24. KEPPRA [Concomitant]
     Active Substance: LEVETIRACETAM
     Dosage: DOSE NOT KNOWN
     Route: 048
  25. HYDROCODONE/ACETAMINOPHEN [Concomitant]
     Active Substance: ACETAMINOPHEN\HYDROCODONE
     Route: 048
     Dates: start: 20151117
  26. PREGABALIN. [Concomitant]
     Active Substance: PREGABALIN
     Route: 048
     Dates: start: 20190807

REACTIONS (5)
  - Sinusitis [Recovering/Resolving]
  - Off label use [Unknown]
  - Bronchitis [Not Recovered/Not Resolved]
  - Intentional product misuse [Unknown]
  - Influenza [Recovered/Resolved]

NARRATIVE: CASE EVENT DATE: 2018
